FAERS Safety Report 22528064 (Version 1)
Quarter: 2023Q2

REPORT INFORMATION
  Report Type: Spontaneous
  Country: US (occurrence: US)
  Receive Date: 20230607
  Receipt Date: 20230607
  Transmission Date: 20230722
  Serious: Yes (Hospitalization, Other)
  Sender: FDA-Public Use
  Company Number: US-STERISCIENCE B.V.-2023-ST-001415

PATIENT
  Age: 68 Year
  Sex: Female

DRUGS (1)
  1. BUPIVACAINE [Suspect]
     Active Substance: BUPIVACAINE
     Indication: Procedural pain
     Dosage: 5 MILLILITER, QH, ONQ PUMP INFUSION
     Route: 065

REACTIONS (1)
  - Drug-induced liver injury [None]
